FAERS Safety Report 14033505 (Version 1)
Quarter: 2017Q4

REPORT INFORMATION
  Report Type: Spontaneous
  Country: GB (occurrence: GB)
  Receive Date: 20171003
  Receipt Date: 20171003
  Transmission Date: 20180321
  Serious: Yes (Life-Threatening)
  Sender: FDA-Public Use
  Company Number: GB-ROCHE-1998793

PATIENT
  Sex: Female

DRUGS (1)
  1. RITUXIMAB. [Suspect]
     Active Substance: RITUXIMAB
     Indication: INVESTIGATION ABNORMAL
     Route: 065

REACTIONS (4)
  - Ill-defined disorder [Unknown]
  - Intentional product use issue [Unknown]
  - Disease progression [Unknown]
  - Off label use [Unknown]
